FAERS Safety Report 18974209 (Version 1)
Quarter: 2021Q1

REPORT INFORMATION
  Report Type: Spontaneous
  Country: US (occurrence: US)
  Receive Date: 20210305
  Receipt Date: 20210305
  Transmission Date: 20210420
  Serious: Yes (Hospitalization)
  Sender: FDA-Public Use
  Company Number: US-ELI_LILLY_AND_COMPANY-US202102012363

PATIENT
  Age: 72 Year
  Sex: Male

DRUGS (5)
  1. HUMULIN N [Suspect]
     Active Substance: INSULIN HUMAN
     Indication: DIABETES MELLITUS
     Dosage: UNK UNK, UNKNOWN
     Route: 065
  2. HUMULIN R U?500 [Suspect]
     Active Substance: INSULIN HUMAN
     Indication: DIABETES MELLITUS
     Dosage: 320 U, DAILY
     Route: 065
     Dates: start: 202009
  3. HUMULIN R U?500 [Suspect]
     Active Substance: INSULIN HUMAN
     Dosage: 320 U, UNKNOWN
     Route: 065
  4. HUMULIN R U?500 [Suspect]
     Active Substance: INSULIN HUMAN
     Dosage: 320 U, UNKNOWN
     Route: 065
  5. HUMULIN R U?500 [Suspect]
     Active Substance: INSULIN HUMAN
     Indication: DIABETES MELLITUS
     Dosage: 320 U, DAILY
     Route: 065
     Dates: start: 202009

REACTIONS (5)
  - Colon cancer [Recovered/Resolved]
  - Wound dehiscence [Recovered/Resolved]
  - Sinus disorder [Recovering/Resolving]
  - Stress [Not Recovered/Not Resolved]
  - Cognitive disorder [Not Recovered/Not Resolved]

NARRATIVE: CASE EVENT DATE: 20210222
